FAERS Safety Report 8516436-3 (Version None)
Quarter: 2012Q3

REPORT INFORMATION
  Report Type: 
  Country: None (occurrence: None)
  Receive Date: 20120718
  Receipt Date: 20120704
  Transmission Date: 20120928
  Serious: Yes (Other)
  Sender: FDA-Public Use
  Company Number: ZA-RANBAXY-2012R5-57780

PATIENT
  Sex: Female

DRUGS (1)
  1. LIPOGEN [Suspect]
     Indication: BLOOD CHOLESTEROL
     Dosage: UNKNOWN
     Route: 065

REACTIONS (1)
  - MUSCULOSKELETAL STIFFNESS [None]
